FAERS Safety Report 6198519-9 (Version None)
Quarter: 2009Q2

REPORT INFORMATION
  Report Type: 
  Country: None (occurrence: None)
  Receive Date: 20090521
  Receipt Date: 20090514
  Transmission Date: 20091009
  Serious: Yes (Hospitalization, Other)
  Sender: FDA-Public Use
  Company Number: PHEH2007US11451

PATIENT
  Sex: Female
  Weight: 56.689 kg

DRUGS (3)
  1. AREDIA [Suspect]
  2. COUMADIN [Concomitant]
     Dosage: 7.5 MG, UNK
     Dates: start: 20040211
  3. PERCOCET [Concomitant]

REACTIONS (26)
  - ANHEDONIA [None]
  - ANXIETY [None]
  - BACK PAIN [None]
  - CEREBRAL ARTERY STENOSIS [None]
  - CONSTIPATION [None]
  - DEEP VEIN THROMBOSIS [None]
  - DEPRESSION [None]
  - DISABILITY [None]
  - FATIGUE [None]
  - FIBROMYALGIA [None]
  - HEADACHE [None]
  - INJURY [None]
  - MASS [None]
  - MASS EXCISION [None]
  - MUSCULAR WEAKNESS [None]
  - OSTEONECROSIS [None]
  - PAIN [None]
  - PLANTAR FASCIITIS [None]
  - RESTLESS LEGS SYNDROME [None]
  - SPINAL OSTEOARTHRITIS [None]
  - THROMBOPHLEBITIS [None]
  - TRANSIENT ISCHAEMIC ATTACK [None]
  - UTERINE CANCER [None]
  - VENOUS INSUFFICIENCY [None]
  - VERTIGO [None]
  - VISION BLURRED [None]
